FAERS Safety Report 4795506-X (Version None)
Quarter: 2005Q4

REPORT INFORMATION
  Report Type: 
  Country: None (occurrence: None)
  Receive Date: 20051006
  Receipt Date: 20051006
  Transmission Date: 20060501
  Serious: Yes (Death)
  Sender: FDA-Public Use
  Company Number: None

PATIENT
  Age: 76 Year
  Sex: Female
  Weight: 97 kg

DRUGS (1)
  1. FARESTON [Suspect]
     Indication: BREAST CANCER
     Dosage: 60MG QDAY P.O.
     Route: 048
     Dates: start: 19990614, end: 20010919

REACTIONS (1)
  - BREAST CANCER [None]
